FAERS Safety Report 8386527-9 (Version None)
Quarter: 2012Q2

REPORT INFORMATION
  Report Type: 
  Country: None (occurrence: None)
  Receive Date: 20120525
  Receipt Date: 20110502
  Transmission Date: 20120825
  Serious: No
  Sender: FDA-Public Use
  Company Number: US-GLAXOSMITHKLINE-A0925331A

PATIENT
  Age: 41 Year
  Sex: Female

DRUGS (2)
  1. GENERIC ALLERGY MEDICATION [Concomitant]
  2. VERAMYST [Suspect]
     Indication: SEASONAL ALLERGY
     Dosage: 1SPR PER DAY
     Route: 045
     Dates: start: 20100101, end: 20110429

REACTIONS (5)
  - PRODUCT QUALITY ISSUE [None]
  - MIOSIS [None]
  - VISUAL IMPAIRMENT [None]
  - DIPLOPIA [None]
  - PHOTOSENSITIVITY REACTION [None]
